FAERS Safety Report 10251178 (Version 1)
Quarter: 2014Q2

REPORT INFORMATION
  Report Type: Report from Study
  Country: US (occurrence: US)
  Receive Date: 20140620
  Receipt Date: 20140620
  Transmission Date: 20141212
  Serious: Yes (Other)
  Sender: FDA-Public Use
  Company Number: US-ABBVIE-14P-163-1247811-00

PATIENT
  Age: 67 Year
  Sex: Female

DRUGS (17)
  1. HUMIRA [Suspect]
     Indication: CROHN^S DISEASE
  2. TYLENOL W/CODEINE NO. 3 [Concomitant]
     Indication: PAIN
     Dosage: 1-2 TABS UP TO FOUR TIMES A DAY
  3. COLESTIPOL [Concomitant]
     Indication: DIARRHOEA
  4. LOVAZA [Concomitant]
     Indication: SUPPLEMENTATION THERAPY
     Route: 048
  5. MAGNESIUM [Concomitant]
     Indication: BLOOD MAGNESIUM DECREASED
     Route: 048
  6. GABAPENTIN [Concomitant]
     Indication: PAIN MANAGEMENT
     Route: 048
  7. NEXIUM [Concomitant]
     Indication: GASTROOESOPHAGEAL REFLUX DISEASE
     Route: 048
  8. VITAMIN D3 [Concomitant]
     Indication: VITAMIN D DECREASED
     Route: 048
  9. IRON [Concomitant]
     Indication: ANAEMIA
     Route: 048
  10. CYMBALTA [Concomitant]
     Indication: FIBROMYALGIA
     Route: 048
  11. LOPERAMIDE HCL [Concomitant]
     Indication: DIARRHOEA
     Dosage: UP TO FOUR TABLES PER DAY
  12. LORAZEPAM [Concomitant]
     Indication: INSOMNIA
     Route: 048
  13. MARIJUANA [Concomitant]
     Indication: INSOMNIA
     Dosage: ONE SMALL BROWNIE AT BEDTIME
  14. KLOR-CON [Concomitant]
     Indication: PRODUCT USED FOR UNKNOWN INDICATION
     Dosage: BY MOUTH
  15. CALCIUM VITAMIN D [Concomitant]
     Indication: PRODUCT USED FOR UNKNOWN INDICATION
     Dosage: 1200/1000 IU
     Route: 048
  16. LEVOTHYROXINE [Concomitant]
     Indication: PRODUCT USED FOR UNKNOWN INDICATION
  17. LEVOTHYROXINE [Concomitant]

REACTIONS (7)
  - Bone graft [Unknown]
  - Device failure [Unknown]
  - Device failure [Unknown]
  - Headache [Not Recovered/Not Resolved]
  - Eye swelling [Not Recovered/Not Resolved]
  - Hypersensitivity [Not Recovered/Not Resolved]
  - Sinusitis [Not Recovered/Not Resolved]
